FAERS Safety Report 7258652-7 (Version None)
Quarter: 2011Q1

REPORT INFORMATION
  Report Type: 
  Country: None (occurrence: None)
  Receive Date: 20110129
  Receipt Date: 20100505
  Transmission Date: 20110831
  Serious: No
  Sender: FDA-Public Use
  Company Number: PR-ABBOTT-10P-131-0642722-00

PATIENT
  Sex: Female
  Weight: 71.278 kg

DRUGS (24)
  1. LIPOFLAVONOIS FOR RINGING HEAR [Concomitant]
     Indication: VERTIGO
  2. LIPITOR [Concomitant]
     Indication: HYPERCHOLESTEROLAEMIA
     Route: 048
  3. LIPITOR [Concomitant]
     Route: 048
  4. ULTRACET [Concomitant]
     Indication: PAIN
     Dosage: 50/325 MG
     Route: 048
  5. DOCUSATE SODIUM [Concomitant]
     Indication: CONSTIPATION
     Dosage: 100 MG
     Route: 048
  6. PHENERGAN [Concomitant]
     Indication: VERTIGO
  7. PHENERGAN [Concomitant]
     Indication: NAUSEA
     Route: 030
  8. DIAZEPAM [Concomitant]
     Indication: VERTIGO
     Route: 048
  9. LYRICA [Concomitant]
     Indication: VEIN DISORDER
     Route: 048
  10. FOSAMAX [Concomitant]
     Indication: OSTEOPOROSIS
     Route: 048
  11. METHOTREXATE [Concomitant]
     Indication: RHEUMATOID ARTHRITIS
     Route: 048
  12. FOLIC ACID [Concomitant]
     Indication: VITAMIN SUPPLEMENTATION
     Route: 048
  13. HUMIRA [Suspect]
     Indication: RHEUMATOID ARTHRITIS
     Dosage: 1 SYRINGE
     Route: 058
     Dates: start: 20100101
  14. LIPOFLAVONOIS FOR RINGING HEAR [Concomitant]
     Indication: TINNITUS
     Route: 048
  15. PLAVIX [Concomitant]
     Indication: ANGIOPATHY
  16. RANTIDINE [Concomitant]
     Indication: GASTRITIS
     Route: 048
  17. MECLIZINE [Concomitant]
     Indication: TINNITUS
     Route: 048
  18. MICRONASE [Concomitant]
     Indication: DIABETES MELLITUS
     Route: 048
  19. MECLIZINE [Concomitant]
     Indication: VERTIGO
  20. VASOFLEX HD [Concomitant]
     Indication: CARDIOVASCULAR DISORDER
     Route: 048
  21. RAMIPRIL [Concomitant]
     Indication: HYPERTENSION
     Route: 048
  22. CELEBREX [Concomitant]
     Indication: RHEUMATOID ARTHRITIS
     Route: 048
  23. AGGRENOX [Concomitant]
     Indication: ANGIOPATHY
     Dosage: 25/200 MG
     Route: 048
  24. OMEPRAZOLE [Concomitant]
     Indication: GASTRITIS
     Route: 048

REACTIONS (8)
  - NODULE [None]
  - JOINT SWELLING [None]
  - TINNITUS [None]
  - OROPHARYNGEAL PAIN [None]
  - CYST [None]
  - INJECTION SITE REACTION [None]
  - LETHARGY [None]
  - LYMPHADENOPATHY [None]
